FAERS Safety Report 6736319-9 (Version None)
Quarter: 2010Q2

REPORT INFORMATION
  Report Type: 
  Country: None (occurrence: None)
  Receive Date: 20100521
  Receipt Date: 20100511
  Transmission Date: 20101027
  Serious: Yes (Hospitalization, Disabling, Other)
  Sender: FDA-Public Use
  Company Number: US-ABBOTT-08P-163-0463686-00

PATIENT
  Sex: Female
  Weight: 54.48 kg

DRUGS (19)
  1. HUMIRA [Suspect]
     Indication: CROHN'S DISEASE
     Route: 058
     Dates: start: 20080415, end: 20080415
  2. HUMIRA [Suspect]
     Route: 058
  3. HUMIRA [Suspect]
     Route: 058
     Dates: end: 20080501
  4. HUMIRA [Suspect]
     Dates: end: 20080703
  5. TYLENOL PM [Concomitant]
     Indication: DRUG USE FOR UNKNOWN INDICATION
     Route: 048
  6. GABAPENTIN [Concomitant]
     Indication: DRUG USE FOR UNKNOWN INDICATION
     Route: 048
  7. VITAMIN B-12 [Concomitant]
     Indication: HYPOVITAMINOSIS
  8. AZATHIOPRINE [Concomitant]
     Indication: DRUG USE FOR UNKNOWN INDICATION
  9. LYRICA [Concomitant]
     Indication: DRUG USE FOR UNKNOWN INDICATION
  10. LYRICA [Concomitant]
     Dosage: 600MG DAILY
  11. LYRICA [Concomitant]
     Dosage: 300MG DAILY
  12. CYMBALTA [Concomitant]
     Indication: NEUROPATHY PERIPHERAL
     Dosage: 60MG(2) IN AM
  13. CYMBALTA [Concomitant]
  14. CYMBALTA [Concomitant]
  15. ULTRAM [Concomitant]
     Indication: DRUG USE FOR UNKNOWN INDICATION
     Dosage: 1/2-2 TABS QID FOR 10 DAYS
     Route: 048
  16. ACIDOPHILUS [Concomitant]
     Indication: DRUG USE FOR UNKNOWN INDICATION
     Route: 048
  17. IMURAN [Concomitant]
     Indication: DRUG USE FOR UNKNOWN INDICATION
     Dosage: 2.5 TABLETS DAILY
  18. MULTI-VITAMIN [Concomitant]
     Indication: DRUG USE FOR UNKNOWN INDICATION
     Route: 048
  19. NEURONTIN [Concomitant]
     Indication: NEUROPATHY PERIPHERAL
     Dosage: INCREASED TO 300MG ,600MG EVEN 900TID
     Route: 048

REACTIONS (11)
  - ABDOMINAL PAIN [None]
  - COUGH [None]
  - CROHN'S DISEASE [None]
  - HEADACHE [None]
  - HYPERAESTHESIA [None]
  - MELANOCYTIC NAEVUS [None]
  - NEUROPATHY PERIPHERAL [None]
  - PAIN IN EXTREMITY [None]
  - PAIN THRESHOLD DECREASED [None]
  - PARAESTHESIA [None]
  - TEMPERATURE INTOLERANCE [None]
